FAERS Safety Report 8321467-2 (Version None)
Quarter: 2012Q2

REPORT INFORMATION
  Report Type: 
  Country: None (occurrence: None)
  Receive Date: 20120430
  Receipt Date: 20120430
  Transmission Date: 20120825
  Serious: Yes (Hospitalization)
  Sender: FDA-Public Use
  Company Number: None

PATIENT
  Age: 22 Year
  Sex: Female
  Weight: 55.791 kg

DRUGS (1)
  1. MIRENA [Suspect]

REACTIONS (6)
  - PAIN [None]
  - MUSCLE SPASMS [None]
  - UTERINE INFLAMMATION [None]
  - DYSURIA [None]
  - CONSTIPATION [None]
  - COMPLICATION OF DEVICE INSERTION [None]
